FAERS Safety Report 15548144 (Version 1)
Quarter: 2018Q4

REPORT INFORMATION
  Report Type: Spontaneous
  Country: US (occurrence: US)
  Receive Date: 20181024
  Receipt Date: 20181024
  Transmission Date: 20190205
  Serious: Yes (Hospitalization, Other)
  Sender: FDA-Public Use
  Company Number: US-SMITH AND NEPHEW, INC-2018SMT00141

PATIENT
  Sex: Female
  Weight: 81.63 kg

DRUGS (3)
  1. UNSPECIFIED INSULIN [Concomitant]
     Active Substance: INSULIN NOS
  2. COLLAGENASE SANTYL [Suspect]
     Active Substance: COLLAGENASE CLOSTRIDIUM HISTOLYTICUM
     Dosage: UNK
     Route: 061
     Dates: start: 2018
  3. COLLAGENASE SANTYL [Suspect]
     Active Substance: COLLAGENASE CLOSTRIDIUM HISTOLYTICUM
     Indication: WOUND
     Dosage: UNK, 3X/WEEK
     Route: 061
     Dates: end: 2018

REACTIONS (4)
  - Infection [Recovered/Resolved]
  - Inappropriate schedule of product administration [Unknown]
  - Foot amputation [Recovered/Resolved with Sequelae]
  - Hospitalisation [Unknown]

NARRATIVE: CASE EVENT DATE: 2018
